FAERS Safety Report 4310893-4 (Version None)
Quarter: 2004Q1

REPORT INFORMATION
  Report Type: 
  Country: None (occurrence: None)
  Receive Date: 20040302
  Receipt Date: 20040220
  Transmission Date: 20041129
  Serious: Yes (Hospitalization)
  Sender: FDA-Public Use
  Company Number: 2004011609

PATIENT
  Age: 2 Year
  Sex: Female

DRUGS (3)
  1. UNACID INJECTION (AMPICILLIN, SULBACTAM) [Suspect]
     Indication: ILL-DEFINED DISORDER
     Dosage: 1200 MG (TID), INTRAVENOUS
     Route: 042
     Dates: start: 20040113, end: 20040115
  2. ACETAMINOPHEN [Suspect]
     Indication: PYREXIA
     Dosage: 100 MG (DAILY), RECTAL
     Route: 054
     Dates: start: 20040107, end: 20040116
  3. PIPERACILLIN [Suspect]
     Indication: ILL-DEFINED DISORDER
     Dosage: 1500 MG (TID), INTRAVENOUS
     Route: 042
     Dates: start: 20031224, end: 20040113

REACTIONS (2)
  - PYREXIA [None]
  - RASH GENERALISED [None]
